FAERS Safety Report 8886385 (Version 1)
Quarter: 2012Q4

REPORT INFORMATION
  Report Type: 
  Country: US (occurrence: US)
  Receive Date: 20121105
  Receipt Date: 20121105
  Transmission Date: 20130627
  Serious: Yes (Hospitalization)
  Sender: FDA-Public Use
  Company Number: US-GLAXOSMITHKLINE-A0978259A

PATIENT
  Age: 32 Year
  Sex: Female

DRUGS (1)
  1. FLOLAN [Suspect]
     Indication: PRODUCT USED FOR UNKNOWN INDICATION
     Dosage: 6NG Continuous
     Route: 042
     Dates: start: 20120420

REACTIONS (3)
  - Headache [Recovering/Resolving]
  - Swelling [Unknown]
  - Pleural effusion [Unknown]
